FAERS Safety Report 4445165-0 (Version None)
Quarter: 2004Q3

REPORT INFORMATION
  Report Type: 
  Country: None (occurrence: None)
  Receive Date: 20040907
  Receipt Date: 20040820
  Transmission Date: 20050211
  Serious: Yes (Hospitalization)
  Sender: FDA-Public Use
  Company Number: 04P-167-0271323-00

PATIENT
  Age: 82 Year
  Sex: Female
  Weight: 61 kg

DRUGS (11)
  1. HUMIRA [Suspect]
     Indication: RHEUMATOID ARTHRITIS
     Dosage: 40 MG, 1 IN 2 WK, SUBCUTANEOUS
     Route: 058
     Dates: start: 20040604
  2. FOLIC ACID [Concomitant]
  3. PREDNISOLONE [Concomitant]
  4. LANSOPRAZOLE [Concomitant]
  5. GLICIAZIDE [Concomitant]
  6. FERROUS SULFATE TAB [Concomitant]
  7. AMITRIPTYLINE HCL [Concomitant]
  8. PARAMOL-118 [Concomitant]
  9. DOMPERIDONE [Concomitant]
  10. CYCLICAL HIDROMOLE [Concomitant]
  11. METHOTREXATE [Concomitant]

REACTIONS (1)
  - ATRIAL FLUTTER [None]
